FAERS Safety Report 9817820 (Version 2)
Quarter: 2014Q1

REPORT INFORMATION
  Report Type: Spontaneous
  Country: US (occurrence: US)
  Receive Date: 20140115
  Receipt Date: 20140212
  Transmission Date: 20141002
  Serious: Yes (Death)
  Sender: FDA-Public Use
  Company Number: US-SA-2014SA004796

PATIENT
  Age: 57 Year
  Sex: Female
  Weight: 95.25 kg

DRUGS (5)
  1. LANTUS [Suspect]
     Indication: DIABETES MELLITUS
     Dosage: 10 UNITS AM AND 90 UNITS BEDTIME
     Route: 051
  2. HUMALOG [Concomitant]
     Indication: DIABETES MELLITUS
  3. LOSARTAN [Concomitant]
  4. CARVEDILOL [Concomitant]
  5. TYLENOL [Concomitant]

REACTIONS (1)
  - Death [Fatal]
